FAERS Safety Report 9109374 (Version 2)
Quarter: 2013Q1

REPORT INFORMATION
  Report Type: Spontaneous
  Country: US (occurrence: US)
  Receive Date: 20130222
  Receipt Date: 20130304
  Transmission Date: 20140127
  Serious: Yes (Other)
  Sender: FDA-Public Use
  Company Number: US-TARO-2013P1002362

PATIENT
  Age: 70 Year
  Sex: Female
  Weight: 72.58 kg

DRUGS (8)
  1. WARFARIN SODIUM TABLETS USP 5MG [Suspect]
     Route: 048
     Dates: start: 20130107, end: 20130110
  2. WARFARIN SODIUM TABLETS USP 5MG [Suspect]
     Route: 048
     Dates: start: 20130111, end: 20130114
  3. WARFARIN SODIUM TABLETS USP 5MG [Suspect]
     Route: 048
     Dates: start: 20130115, end: 20130207
  4. VERAPAMIL CAPSULES [Concomitant]
     Dates: start: 2003
  5. TRIAMTERENE/HCTZ 35.5/25MG [Concomitant]
     Dates: start: 2003
  6. ESTRADIOL [Concomitant]
     Dates: start: 2003
  7. BABY ASPIRIN [Concomitant]
     Dates: start: 2007
  8. BABY ASPIRIN [Concomitant]
     Dates: start: 2013

REACTIONS (20)
  - Vulvitis [Recovering/Resolving]
  - Retinal vein thrombosis [Unknown]
  - Retinal migraine [Recovered/Resolved]
  - Contusion [Recovering/Resolving]
  - International normalised ratio decreased [Unknown]
  - Skin swelling [Recovering/Resolving]
  - Pain [Recovering/Resolving]
  - Feeling hot [Recovered/Resolved]
  - Aphthous stomatitis [Recovered/Resolved]
  - Glossodynia [Recovered/Resolved]
  - Headache [Recovered/Resolved]
  - Diplopia [Recovered/Resolved]
  - Vision blurred [Recovered/Resolved]
  - Malaise [Recovered/Resolved]
  - Vitreous floaters [Unknown]
  - Thrombosis [Unknown]
  - Skin disorder [Unknown]
  - Pruritus [Unknown]
  - Secretion discharge [Unknown]
  - Rash [Recovering/Resolving]
